FAERS Safety Report 12841660 (Version 2)
Quarter: 2017Q2

REPORT INFORMATION
  Report Type: Spontaneous
  Country: US (occurrence: US)
  Receive Date: 20161012
  Receipt Date: 20170616
  Transmission Date: 20170830
  Serious: Yes (Death, Hospitalization, Other)
  Sender: FDA-Public Use
  Company Number: US-SAOL THERAPEUTICS-2016SAO00805

PATIENT
  Age: 59 Year
  Sex: Male

DRUGS (10)
  1. BACLOFEN. [Suspect]
     Active Substance: BACLOFEN
     Indication: PAIN
     Dosage: 134.5 ?G, \DAY
     Route: 037
  2. DILAUDID [Suspect]
     Active Substance: HYDROMORPHONE HYDROCHLORIDE
     Dosage: 15 MG, \DAY
     Route: 037
  3. BACLOFEN. [Suspect]
     Active Substance: BACLOFEN
     Indication: POST LAMINECTOMY SYNDROME
  4. AMBIEN [Suspect]
     Active Substance: ZOLPIDEM TARTRATE
  5. LINZESS [Suspect]
     Active Substance: LINACLOTIDE
  6. AMITIZA [Suspect]
     Active Substance: LUBIPROSTONE
  7. ZOFRAN [Suspect]
     Active Substance: ONDANSETRON HYDROCHLORIDE
  8. BUPIVACAINE. [Suspect]
     Active Substance: BUPIVACAINE
     Dosage: 14.2 MG, \DAY
     Route: 037
  9. BACLOFEN. [Suspect]
     Active Substance: BACLOFEN
     Route: 048
  10. PERCOCET [Suspect]
     Active Substance: ACETAMINOPHEN\OXYCODONE HYDROCHLORIDE

REACTIONS (55)
  - Fall [Recovered/Resolved]
  - Diabetic ketoacidosis [Recovered/Resolved]
  - Blood glucose increased [Recovered/Resolved]
  - Sedation [Recovered/Resolved]
  - Concussion [Recovered/Resolved]
  - Agitation [Recovered/Resolved]
  - Tremor [Recovered/Resolved]
  - Pruritus [Recovered/Resolved]
  - Intestinal obstruction [Recovered/Resolved]
  - Cardiomegaly [None]
  - Nephrosclerosis [None]
  - Unresponsive to stimuli [Recovered/Resolved]
  - Asthenia [Recovered/Resolved]
  - Implant site mass [Recovered/Resolved]
  - Toxicity to various agents [Fatal]
  - Drug withdrawal syndrome [Recovered/Resolved]
  - Discomfort [Recovered/Resolved]
  - Anxiety [Recovered/Resolved]
  - Formication [Recovered/Resolved]
  - Electrolyte imbalance [Recovered/Resolved]
  - Chronic kidney disease [Fatal]
  - Therapeutic response decreased [Recovered/Resolved]
  - Loss of consciousness [Recovered/Resolved]
  - Vomiting [Recovered/Resolved]
  - Cerebrospinal fluid leakage [Recovered/Resolved]
  - Overdose [Recovered/Resolved]
  - Pain [Recovered/Resolved]
  - Weight decreased [Recovered/Resolved]
  - Nausea [Recovered/Resolved]
  - Crying [Recovered/Resolved]
  - Cold sweat [Recovered/Resolved]
  - Mitral valve disease [None]
  - Device infusion issue [Recovered/Resolved]
  - Dehydration [Recovered/Resolved]
  - Somnolence [Recovered/Resolved]
  - Diarrhoea [Recovered/Resolved]
  - Mental impairment [Recovered/Resolved]
  - Hypertension [None]
  - Pulmonary congestion [Recovered/Resolved]
  - Fatigue [Recovered/Resolved]
  - Type 2 diabetes mellitus [None]
  - Subgaleal haematoma [Recovered/Resolved]
  - Complication associated with device [Recovered/Resolved]
  - Chest pain [Recovered/Resolved]
  - Lethargy [Recovered/Resolved]
  - Hypopnoea [Recovered/Resolved]
  - Dyspnoea [Recovered/Resolved]
  - Off label use [Recovered/Resolved]
  - Hyperhidrosis [Recovered/Resolved]
  - Hypoaesthesia [Recovered/Resolved]
  - Decreased appetite [Recovered/Resolved]
  - Device failure [Recovered/Resolved]
  - Laceration [Recovered/Resolved]
  - Diplegia [Recovered/Resolved]
  - Depression [Recovered/Resolved]

NARRATIVE: CASE EVENT DATE: 20100915
